FAERS Safety Report 5020108-X (Version None)
Quarter: 2006Q2

REPORT INFORMATION
  Report Type: 
  Country: None (occurrence: None)
  Receive Date: 20060601
  Receipt Date: 20060516
  Transmission Date: 20061013
  Serious: Yes (Other)
  Sender: FDA-Public Use
  Company Number: 2006BH010155

PATIENT
  Age: 66 Year
  Sex: Male

DRUGS (3)
  1. FENTANYL CITRATE [Suspect]
     Indication: CYSTOPROSTATECTOMY
     Dosage: 50 UG
  2. MIDAZOLAM HYDROCHLORIDE [Suspect]
     Indication: CYSTOPROSTATECTOMY
     Dosage: 1 MG
  3. INHALED BRONCHODILATORS [Concomitant]

REACTIONS (14)
  - AMNESIA [None]
  - ANAPHYLACTIC REACTION [None]
  - BLOOD PRESSURE DECREASED [None]
  - CARBON DIOXIDE DECREASED [None]
  - CARDIAC ARREST [None]
  - CYANOSIS [None]
  - DRUG EFFECT DECREASED [None]
  - DRUG INEFFECTIVE [None]
  - ELECTROMECHANICAL DISSOCIATION [None]
  - HYPOXIA [None]
  - PERSONALITY CHANGE [None]
  - REFUSAL OF TREATMENT BY PATIENT [None]
  - SINUS BRADYCARDIA [None]
  - VENTRICULAR FIBRILLATION [None]
